FAERS Safety Report 18410120 (Version 2)
Quarter: 2020Q4

REPORT INFORMATION
  Report Type: Report from Study
  Country: US (occurrence: US)
  Receive Date: 20201021
  Receipt Date: 20201208
  Transmission Date: 20210114
  Serious: Yes (Death, Hospitalization, Other)
  Sender: FDA-Public Use
  Company Number: US-ASTELLAS-2017US043025

PATIENT
  Age: 81 Year
  Sex: Male
  Weight: 117 kg

DRUGS (1)
  1. ASG-22CE [Suspect]
     Active Substance: ENFORTUMAB VEDOTIN
     Indication: PRODUCT USED FOR UNKNOWN INDICATION
     Route: 042
     Dates: start: 20170905, end: 20171013

REACTIONS (8)
  - Multiple organ dysfunction syndrome [Fatal]
  - Acidosis [Not Recovered/Not Resolved]
  - Haemolysis [Recovering/Resolving]
  - Hyperglycaemia [Recovering/Resolving]
  - Rash maculo-papular [Recovering/Resolving]
  - Delirium [Not Recovered/Not Resolved]
  - Acute kidney injury [Not Recovered/Not Resolved]
  - Atrial fibrillation [Not Recovered/Not Resolved]

NARRATIVE: CASE EVENT DATE: 20171020
